FAERS Safety Report 22193901 (Version 6)
Quarter: 2024Q3

REPORT INFORMATION
  Report Type: Report from Study
  Country: US (occurrence: US)
  Receive Date: 20230410
  Receipt Date: 20240822
  Transmission Date: 20241017
  Serious: Yes (Other)
  Sender: TAKEDA
  Company Number: US-TAKEDA-2021TUS052102

PATIENT
  Age: 17 Year
  Sex: Female
  Weight: 131 kg

DRUGS (3)
  1. LANADELUMAB [Suspect]
     Active Substance: LANADELUMAB
     Indication: Immune system disorder
     Dosage: 300 MILLIGRAM, Q4WEEKS
     Route: 058
     Dates: start: 20210805
  2. LANADELUMAB [Suspect]
     Active Substance: LANADELUMAB
     Dosage: 300 MILLIGRAM, Q2WEEKS
     Route: 058
  3. ICATIBANT [Concomitant]
     Active Substance: ICATIBANT ACETATE
     Dosage: UNK
     Route: 065

REACTIONS (6)
  - Syncope [Not Recovered/Not Resolved]
  - Overweight [Not Recovered/Not Resolved]
  - Emotional distress [Not Recovered/Not Resolved]
  - Off label use [Unknown]
  - Product dose omission issue [Unknown]
  - Hereditary angioedema [Not Recovered/Not Resolved]

NARRATIVE: CASE EVENT DATE: 20210805
